FAERS Safety Report 17904207 (Version 1)
Quarter: 2020Q2

REPORT INFORMATION
  Report Type: Spontaneous
  Country: US (occurrence: US)
  Receive Date: 20200617
  Receipt Date: 20200617
  Transmission Date: 20200714
  Serious: No
  Sender: FDA-Public Use
  Company Number: US-AUROBINDO-AUR-APL-2019-037070

PATIENT
  Sex: Female

DRUGS (1)
  1. CLINDAMYCIN PALMITATE HYDROCHLORIDE FOR ORAL SOLUTION USP(PEDIATRIC) [Suspect]
     Active Substance: CLINDAMYCIN PALMITATE HYDROCHLORIDE
     Indication: SINUSITIS
     Dosage: 6 MILLILITER, 3 TIMES A DAY
     Route: 048
     Dates: start: 20190608

REACTIONS (2)
  - Product odour abnormal [Unknown]
  - Product reconstitution quality issue [Unknown]
